FAERS Safety Report 25674203 (Version 2)
Quarter: 2025Q4

REPORT INFORMATION
  Report Type: Spontaneous
  Country: US (occurrence: US)
  Receive Date: 20250813
  Receipt Date: 20251017
  Transmission Date: 20260117
  Serious: No
  Sender: BRISTOL-MYERS SQUIBB COMPANY
  Company Number: US-BRISTOL-MYERS SQUIBB COMPANY-2025-111815

PATIENT
  Age: 71 Year
  Sex: Male

DRUGS (2)
  1. POMALYST [Suspect]
     Active Substance: POMALIDOMIDE
     Indication: Plasma cell myeloma in remission
     Dates: start: 20250723
  2. POMALYST [Suspect]
     Active Substance: POMALIDOMIDE
     Indication: Plasma cell myeloma
     Dates: start: 202406

REACTIONS (7)
  - Vision blurred [Unknown]
  - Heart rate decreased [Unknown]
  - Muscle spasms [Unknown]
  - Sleep disorder [Unknown]
  - Pollakiuria [Unknown]
  - Blood glucose increased [Unknown]
  - Electrolyte imbalance [Unknown]
